FAERS Safety Report 6220793-0 (Version None)
Quarter: 2009Q2

REPORT INFORMATION
  Report Type: 
  Country: None (occurrence: None)
  Receive Date: 20090610
  Receipt Date: 20090527
  Transmission Date: 20091009
  Serious: Yes (Other)
  Sender: FDA-Public Use
  Company Number: AT-BAYER-200915880GPV

PATIENT
  Age: 42 Year
  Sex: Female
  Weight: 70 kg

DRUGS (3)
  1. MIRENA [Suspect]
     Indication: CONTRACEPTION
     Route: 015
  2. MIRENA [Suspect]
     Route: 015
  3. MIRENA [Suspect]
     Dosage: ALL IN ALL 10 YEARS
     Route: 015
     Dates: start: 20080101, end: 20090101

REACTIONS (1)
  - PAPILLOEDEMA [None]
